FAERS Safety Report 9601811 (Version 1)
Quarter: 2013Q4

REPORT INFORMATION
  Report Type: Report from Study
  Country: CA (occurrence: CA)
  Receive Date: 20131007
  Receipt Date: 20131007
  Transmission Date: 20140711
  Serious: Yes (Other)
  Sender: FDA-Public Use
  Company Number: CA-ROCHE-1283284

PATIENT
  Age: 43 Year
  Sex: Female
  Weight: 69.6 kg

DRUGS (5)
  1. PERTUZUMAB [Suspect]
     Indication: BREAST CANCER METASTATIC
     Route: 042
     Dates: start: 20130808
  2. HERCEPTIN [Suspect]
     Indication: BREAST CANCER METASTATIC
     Route: 065
  3. TAXOTERE [Suspect]
     Indication: BREAST CANCER
     Route: 065
  4. TYLENOL [Concomitant]
     Route: 065
  5. MELATONIN [Concomitant]
     Route: 048

REACTIONS (1)
  - Blepharospasm [Not Recovered/Not Resolved]
